FAERS Safety Report 4659892-3 (Version None)
Quarter: 2005Q2

REPORT INFORMATION
  Report Type: 
  Country: None (occurrence: None)
  Receive Date: 20050502
  Receipt Date: 20041203
  Transmission Date: 20051028
  Serious: Yes (Hospitalization)
  Sender: FDA-Public Use
  Company Number: KDL101960

PATIENT
  Age: 47 Year
  Sex: Female

DRUGS (2)
  1. PROCRIT [Suspect]
     Indication: ANAEMIA OF MALIGNANT DISEASE
     Dosage: 20000 IU, 3 IN 1 WEEKS
     Dates: start: 20030101
  2. BLOOD CELLS, PACKED HUMAN [Concomitant]

REACTIONS (1)
  - MYOCARDIAL INFARCTION [None]
